FAERS Safety Report 10501125 (Version 2)
Quarter: 2015Q1

REPORT INFORMATION
  Report Type: Spontaneous
  Country: CA (occurrence: CA)
  Receive Date: 20141007
  Receipt Date: 20150130
  Transmission Date: 20150720
  Serious: Yes (Other)
  Sender: FDA-Public Use
  Company Number: CA-RANBAXY-2014US-86228

PATIENT
  Sex: Female

DRUGS (4)
  1. PANTOPRAZOLE [Suspect]
     Active Substance: PANTOPRAZOLE SODIUM
     Indication: PRODUCT USED FOR UNKNOWN INDICATION
     Dosage: UNK
     Route: 042
  2. ONDANSETRON [Concomitant]
     Active Substance: ONDANSETRON
     Indication: PRODUCT USED FOR UNKNOWN INDICATION
     Dosage: UNK
     Route: 065
  3. DEXAMETHASONE. [Concomitant]
     Active Substance: DEXAMETHASONE
     Indication: PRODUCT USED FOR UNKNOWN INDICATION
     Dosage: UNK
     Route: 065
  4. DOXORUBICIN [Suspect]
     Active Substance: DOXORUBICIN
     Indication: PRODUCT USED FOR UNKNOWN INDICATION
     Dosage: 60 MG/M2, Q3WEEKS
     Route: 042

REACTIONS (20)
  - Lymphocyte count decreased [Unknown]
  - Hypotension [Unknown]
  - Pyrexia [Unknown]
  - Dysgeusia [Unknown]
  - Stomatitis [Unknown]
  - Febrile neutropenia [Unknown]
  - Lung infection [Unknown]
  - Tooth infection [Unknown]
  - Hepatic infection [Unknown]
  - Alopecia [Unknown]
  - Nausea [Unknown]
  - White blood cell count decreased [Unknown]
  - Platelet count decreased [Unknown]
  - Decreased appetite [Unknown]
  - Neutrophil count decreased [Unknown]
  - Anaemia [Unknown]
  - Ejection fraction decreased [Unknown]
  - Oesophagitis [Unknown]
  - Vomiting [Unknown]
  - Fatigue [Unknown]
